FAERS Safety Report 17958131 (Version 2)
Quarter: 2020Q3

REPORT INFORMATION
  Report Type: Spontaneous
  Country: JP (occurrence: JP)
  Receive Date: 20200629
  Receipt Date: 20200706
  Transmission Date: 20201103
  Serious: Yes (Death)
  Sender: FDA-Public Use
  Company Number: JP-JNJFOC-20200434957

PATIENT
  Age: 66 Year
  Sex: Male

DRUGS (3)
  1. APREPITANT. [Interacting]
     Active Substance: APREPITANT
     Indication: SOFT TISSUE SARCOMA
     Route: 048
     Dates: start: 20200323
  2. TRABECTEDIN [Suspect]
     Active Substance: TRABECTEDIN
     Indication: SOFT TISSUE SARCOMA
     Route: 041
     Dates: start: 20200323
  3. TRABECTEDIN [Suspect]
     Active Substance: TRABECTEDIN
     Route: 041
     Dates: start: 20200504, end: 20200525

REACTIONS (3)
  - Liver disorder [Unknown]
  - Drug interaction [Unknown]
  - Pneumonia [Fatal]
